FAERS Safety Report 4985322-8 (Version None)
Quarter: 2006Q2

REPORT INFORMATION
  Report Type: 
  Country: None (occurrence: None)
  Receive Date: 20060427
  Receipt Date: 20051006
  Transmission Date: 20061013
  Serious: Yes (Hospitalization, Other)
  Sender: FDA-Public Use
  Company Number: US-MERCK-0510USA05968

PATIENT
  Age: 56 Year
  Sex: Male
  Weight: 82 kg

DRUGS (1)
  1. VIOXX [Suspect]
     Indication: PAIN
     Route: 048
     Dates: start: 20000101, end: 20020601

REACTIONS (27)
  - AGITATION [None]
  - ANXIETY [None]
  - ARTERY DISSECTION [None]
  - BIPOLAR I DISORDER [None]
  - CEREBROVASCULAR ACCIDENT [None]
  - CONSTIPATION [None]
  - CONVULSION [None]
  - CORONARY ARTERY DISEASE [None]
  - DEEP VEIN THROMBOSIS [None]
  - DEMENTIA [None]
  - DEMENTIA ALZHEIMER'S TYPE [None]
  - DEPRESSION [None]
  - DYSARTHRIA [None]
  - GASTRITIS [None]
  - GASTRITIS EROSIVE [None]
  - HAEMATOCHEZIA [None]
  - HAEMORRHOIDS [None]
  - HEMIPARESIS [None]
  - HYPERTENSION [None]
  - IRON DEFICIENCY ANAEMIA [None]
  - ISCHAEMIC STROKE [None]
  - MAJOR DEPRESSION [None]
  - MENTAL DISORDER [None]
  - NERVOUS SYSTEM DISORDER [None]
  - PARANOIA [None]
  - SENSATION OF HEAVINESS [None]
  - SUICIDAL IDEATION [None]
